FAERS Safety Report 12937437 (Version 2)
Quarter: 2017Q1

REPORT INFORMATION
  Report Type: Spontaneous
  Country: US (occurrence: US)
  Receive Date: 20161114
  Receipt Date: 20170207
  Transmission Date: 20170428
  Serious: No
  Sender: FDA-Public Use
  Company Number: US-PFIZER INC-2016525953

PATIENT
  Age: 71 Year
  Sex: Male
  Weight: 97 kg

DRUGS (9)
  1. SOTALOL HCL [Suspect]
     Active Substance: SOTALOL
     Indication: LUNG TRANSPLANT
     Dosage: 80 MG, UNK (1-2 A DAY)
  2. PREDNISONE. [Concomitant]
     Active Substance: PREDNISONE
     Dosage: 5 MG, 2X/DAY
  3. RAPAMUNE [Suspect]
     Active Substance: SIROLIMUS
     Indication: PROPHYLAXIS AGAINST TRANSPLANT REJECTION
     Dosage: 1 MG, 1X/DAY
     Route: 048
     Dates: start: 20160805, end: 20160825
  4. SULFAMETHOXAZOLE/TRIMETHOPRIM [Suspect]
     Active Substance: SULFAMETHOXAZOLE\TRIMETHOPRIM
     Indication: LUNG TRANSPLANT
     Dosage: 80 MG/400 MG, 1X/DAY
  5. AMLODIPINE BESILATE [Suspect]
     Active Substance: AMLODIPINE BESYLATE
     Indication: LUNG TRANSPLANT
     Dosage: 10 MG, 1X/DAY
  6. OMEPRAZOLE. [Suspect]
     Active Substance: OMEPRAZOLE
     Indication: LUNG TRANSPLANT
     Dosage: 20 MG, 1X/DAY
  7. AZITHROMYCIN ANHYDROUS. [Concomitant]
     Active Substance: AZITHROMYCIN ANHYDROUS
     Dosage: 250 MG, MON-WED-FRI EACH WEAK
  8. PROGRAFT [Concomitant]
     Active Substance: TACROLIMUS
     Dosage: 0.5 MG, 1X/DAY
  9. PROGRAFT [Concomitant]
     Active Substance: TACROLIMUS
     Indication: LUNG TRANSPLANT
     Dosage: 0.5 MG, 2X/DAY
     Route: 048
     Dates: start: 2007

REACTIONS (17)
  - Epistaxis [Recovering/Resolving]
  - Gingival pain [None]
  - Panic reaction [Recovered/Resolved]
  - Intentional product use issue [Recovered/Resolved]
  - Laceration [None]
  - Skin abrasion [None]
  - Dyspnoea [Unknown]
  - Product use issue [Unknown]
  - Oropharyngeal pain [Recovering/Resolving]
  - Impaired healing [Recovered/Resolved]
  - Fatigue [Recovered/Resolved]
  - Sinus headache [Recovered/Resolved]
  - Malaise [Recovering/Resolving]
  - Condition aggravated [Unknown]
  - Influenza like illness [Recovered/Resolved]
  - Ulcer [None]
  - Oral pain [None]

NARRATIVE: CASE EVENT DATE: 20160805
